FAERS Safety Report 6254076-X (Version None)
Quarter: 2009Q3

REPORT INFORMATION
  Report Type: 
  Country: None (occurrence: None)
  Receive Date: 20090702
  Receipt Date: 20090626
  Transmission Date: 20100115
  Serious: Yes (Other)
  Sender: FDA-Public Use
  Company Number: LT-ABBOTT-09P-234-0582122-00

PATIENT
  Sex: Male

DRUGS (2)
  1. DEPAKENE [Suspect]
     Indication: EPILEPSY
     Route: 048
     Dates: start: 20080701
  2. DEPAKENE [Suspect]
     Indication: BRAIN INJURY
     Dosage: REDUCED DOSE
     Dates: start: 20080729

REACTIONS (6)
  - AMNESIA [None]
  - CONVULSION [None]
  - CYANOSIS [None]
  - DRUG WITHDRAWAL SYNDROME [None]
  - FALL [None]
  - SUDDEN ONSET OF SLEEP [None]
